FAERS Safety Report 20221265 (Version 2)
Quarter: 2022Q1

REPORT INFORMATION
  Report Type: Spontaneous
  Country: US (occurrence: US)
  Receive Date: 20211223
  Receipt Date: 20220106
  Transmission Date: 20220423
  Serious: Yes (Other)
  Sender: FDA-Public Use
  Company Number: US-009507513-2112USA007234

PATIENT
  Age: 70 Year
  Sex: Male

DRUGS (3)
  1. KEYTRUDA [Suspect]
     Active Substance: PEMBROLIZUMAB
     Indication: Oesophageal adenocarcinoma
     Dosage: 200 MILLIGRAM, EVERY 3 WEEKS
  2. CARBOPLATIN [Concomitant]
     Active Substance: CARBOPLATIN
     Dosage: WEEKLY
  3. PACLITAXEL [Concomitant]
     Active Substance: PACLITAXEL
     Dosage: WEEKLY

REACTIONS (1)
  - Autoimmune haemolytic anaemia [Not Recovered/Not Resolved]
